FAERS Safety Report 23629815 (Version 2)
Quarter: 2024Q1

REPORT INFORMATION
  Report Type: Spontaneous
  Country: US (occurrence: US)
  Receive Date: 20240314
  Receipt Date: 20240318
  Transmission Date: 20240409
  Serious: Yes (Hospitalization, Other)
  Sender: FDA-Public Use
  Company Number: US-ViiV Healthcare Limited-108698

PATIENT

DRUGS (1)
  1. TRIUMEQ [Suspect]
     Active Substance: ABACAVIR SULFATE\DOLUTEGRAVIR SODIUM\LAMIVUDINE
     Indication: HIV infection
     Dosage: 1 DF, QD
     Dates: end: 20240304

REACTIONS (8)
  - Myocardial infarction [Unknown]
  - Eye operation [Unknown]
  - Spinal fracture [Unknown]
  - Fall [Unknown]
  - Rotator cuff syndrome [Unknown]
  - Joint injury [Unknown]
  - Road traffic accident [Unknown]
  - Injury [Unknown]

NARRATIVE: CASE EVENT DATE: 20231111
